FAERS Safety Report 6261160-3 (Version None)
Quarter: 2009Q3

REPORT INFORMATION
  Report Type: 
  Country: None (occurrence: None)
  Receive Date: 20090709
  Receipt Date: 20080606
  Transmission Date: 20100115
  Serious: No
  Sender: FDA-Public Use
  Company Number: US-KINGPHARMUSA00001-K200800663

PATIENT
  Age: 85 Year
  Sex: Female
  Weight: 68.027 kg

DRUGS (5)
  1. LEVOXYL [Suspect]
     Indication: HYPOTHYROIDISM
     Dosage: 88 MCG, QD
     Route: 048
  2. LEVOXYL [Suspect]
     Dosage: 125 MCG, QD
     Route: 048
     Dates: end: 20080609
  3. METOPROLOL SUCCINATE [Concomitant]
     Dosage: 50 MG, UNK
     Dates: start: 20080101
  4. METOPROLOL SUCCINATE [Concomitant]
     Dosage: 75 MG, UNK
     Dates: end: 20080101
  5. ASPIRIN [Concomitant]
     Dosage: 81 MG, QD

REACTIONS (3)
  - DIZZINESS [None]
  - FATIGUE [None]
  - GAIT DISTURBANCE [None]
